FAERS Safety Report 16285620 (Version 1)
Quarter: 2019Q2

REPORT INFORMATION
  Report Type: Spontaneous
  Country: US (occurrence: US)
  Receive Date: 20190506
  Receipt Date: 20190506
  Transmission Date: 20190711
  Serious: Yes (Disabling, Other)
  Sender: FDA-Public Use
  Company Number: None

PATIENT
  Age: 52 Year
  Sex: Female
  Weight: 59.85 kg

DRUGS (6)
  1. LEVOTHYROXINE. [Concomitant]
     Active Substance: LEVOTHYROXINE
  2. BONIVA [Suspect]
     Active Substance: IBANDRONATE SODIUM
     Indication: OSTEOPOROSIS
     Dosage: ?          QUANTITY:1 TABLET(S);?
     Route: 048
     Dates: start: 20181008, end: 20181008
  3. METROPOLOL [Concomitant]
     Active Substance: METOPROLOL
  4. COD LIVER OIL [Concomitant]
     Active Substance: COD LIVER OIL
  5. MULTIVITAMIN [Concomitant]
     Active Substance: VITAMINS
  6. PROBIOTIC [Concomitant]
     Active Substance: PROBIOTICS NOS

REACTIONS (10)
  - Pain [None]
  - Peripheral swelling [None]
  - Heart rate increased [None]
  - Heart rate irregular [None]
  - Renal impairment [None]
  - Influenza like illness [None]
  - Urinary tract infection [None]
  - Hypertension [None]
  - Liver function test increased [None]
  - Blood urine present [None]

NARRATIVE: CASE EVENT DATE: 20181008
